FAERS Safety Report 6032645-X (Version None)
Quarter: 2009Q1

REPORT INFORMATION
  Report Type: 
  Country: None (occurrence: None)
  Receive Date: 20090107
  Receipt Date: 20090107
  Transmission Date: 20090719
  Serious: No
  Sender: FDA-Public Use
  Company Number: None

PATIENT
  Sex: Female
  Weight: 71.82 kg

DRUGS (19)
  1. LISINOPRIL [Suspect]
     Dosage: 10MG TABLET 10 MG QD ORAL
     Route: 048
     Dates: start: 20081110, end: 20090107
  2. ALENDRONATE SODIUM [Concomitant]
  3. ARMASIN (EXEMESTANE) [Concomitant]
  4. ATIVAN [Concomitant]
  5. CALCIUM D [Concomitant]
  6. CALCIUM CARBONATE [Concomitant]
  7. FERROUS SULFATE TAB [Concomitant]
  8. FUROSEMIDE [Concomitant]
  9. GLYBURIDE [Concomitant]
  10. LEVOXYL (LEVOTHROXINE SODIUM) [Concomitant]
  11. LIPITOR [Concomitant]
  12. MVI (MULTIVITAMINS) [Concomitant]
  13. NIFEDIPINE [Concomitant]
  14. POLYETHYLENE GLYCOL [Concomitant]
  15. REMERON [Concomitant]
  16. SENOKOT [Concomitant]
  17. TASSALON PERLES (BENZONATATE) [Concomitant]
  18. TUSSIONEX [Concomitant]
  19. VITAMIN D3 [Concomitant]

REACTIONS (1)
  - COUGH [None]
